FAERS Safety Report 8585181-0 (Version None)
Quarter: 2012Q3

REPORT INFORMATION
  Report Type: 
  Country: None (occurrence: None)
  Receive Date: 20120810
  Receipt Date: 20120807
  Transmission Date: 20120928
  Serious: Yes (Other)
  Sender: FDA-Public Use
  Company Number: PHHY2012JP060986

PATIENT
  Age: 82 Year
  Sex: Female

DRUGS (4)
  1. DIOVAN HCT [Suspect]
     Indication: HYPERTENSION
     Dosage: 1 DF, DAILY (VALS 80 MG AND 12.5 MG HCTZ)
     Route: 048
     Dates: start: 20120706, end: 20120716
  2. HOCHU-EKKI-TO [Suspect]
     Route: 048
     Dates: start: 20120705
  3. JUZEN-TAIHO-TO [Suspect]
     Route: 048
     Dates: start: 20120705
  4. CRESTOR [Concomitant]
     Route: 048

REACTIONS (4)
  - BALANCE DISORDER [None]
  - HAND DEFORMITY [None]
  - FOOT DEFORMITY [None]
  - MONOPLEGIA [None]
